FAERS Safety Report 5981505-9 (Version None)
Quarter: 2008Q4

REPORT INFORMATION
  Report Type: 
  Country: None (occurrence: None)
  Receive Date: 20081202
  Receipt Date: 20081119
  Transmission Date: 20090506
  Serious: Yes (Other)
  Sender: FDA-Public Use
  Company Number: 20596

PATIENT
  Age: 53 Year
  Sex: Female

DRUGS (2)
  1. CARBOPLATIN [Suspect]
     Indication: OVARIAN EPITHELIAL CANCER STAGE III
  2. TYKERB [Suspect]
     Indication: OVARIAN EPITHELIAL CANCER
     Dosage: 750 MG DAILY PO
     Route: 048

REACTIONS (6)
  - DIARRHOEA [None]
  - MUSCLE SPASMS [None]
  - NAUSEA [None]
  - RASH [None]
  - THROMBOCYTOPENIA [None]
  - VULVOVAGINAL DRYNESS [None]
